FAERS Safety Report 5491844-6 (Version None)
Quarter: 2007Q4

REPORT INFORMATION
  Report Type: 
  Country: None (occurrence: None)
  Receive Date: 20071018
  Receipt Date: 20071009
  Transmission Date: 20080405
  Serious: Yes (Life-Threatening)
  Sender: FDA-Public Use
  Company Number: 2007-04601

PATIENT
  Age: 61 Year
  Sex: Female
  Weight: 73.2 kg

DRUGS (7)
  1. LORAZEPAM [Suspect]
     Indication: ANXIETY
     Dosage: 1 MG, BID, ORAL; 2 MG PRN, ORAL
     Route: 048
     Dates: start: 20061010, end: 20070820
  2. LORAZEPAM [Suspect]
     Indication: ANXIETY
     Dosage: 1 MG, BID, ORAL; 2 MG PRN, ORAL
     Route: 048
     Dates: start: 20061010, end: 20070820
  3. BIFEPRUNOX() [Suspect]
     Indication: SCHIZOPHRENIA
     Dosage: 0.25 - 40 MG, DAILY, (TITRATION), ORAL
     Route: 048
     Dates: start: 20070927
  4. HYDROCHLOROTHIAZIDE [Concomitant]
  5. AMBIEN [Concomitant]
  6. TYLENOL PM (DIPHENHYDRAMINE, PARACETAMOL) [Concomitant]
  7. TRICYCLIC ANTIDEPRESSANTS [Concomitant]

REACTIONS (8)
  - BLOOD GLUCOSE INCREASED [None]
  - DYSARTHRIA [None]
  - GLOMERULAR FILTRATION RATE DECREASED [None]
  - LETHARGY [None]
  - MIOSIS [None]
  - MULTIPLE DRUG OVERDOSE ACCIDENTAL [None]
  - SOMNOLENCE [None]
  - TACHYCARDIA [None]
